FAERS Safety Report 11225839 (Version 1)
Quarter: 2015Q2

REPORT INFORMATION
  Report Type: Spontaneous
  Country: US (occurrence: US)
  Receive Date: 20150629
  Receipt Date: 20150629
  Transmission Date: 20150821
  Serious: No
  Sender: FDA-Public Use
  Company Number: US-BAYER-2015-361700

PATIENT
  Sex: Female

DRUGS (2)
  1. MENSTRIDOL [Suspect]
     Active Substance: NAPROXEN SODIUM
     Dosage: UNK
  2. MIDOL [Suspect]
     Active Substance: IBUPROFEN
     Dosage: UNK

REACTIONS (2)
  - Drug ineffective [Unknown]
  - Product use issue [Unknown]
